FAERS Safety Report 4534771-0 (Version None)
Quarter: 2004Q4

REPORT INFORMATION
  Report Type: 
  Country: None (occurrence: None)
  Receive Date: 20041222
  Receipt Date: 20040220
  Transmission Date: 20050328
  Serious: No
  Sender: FDA-Public Use
  Company Number: US-BRISTOL-MYERS SQUIBB COMPANY-12512778

PATIENT
  Sex: Female

DRUGS (2)
  1. PRAVACHOL [Suspect]
     Indication: BLOOD CHOLESTEROL
     Route: 048
  2. PREMARIN [Concomitant]

REACTIONS (3)
  - BACK PAIN [None]
  - MUSCLE CRAMP [None]
  - PAIN [None]
